FAERS Safety Report 6709146-6 (Version None)
Quarter: 2010Q2

REPORT INFORMATION
  Report Type: 
  Country: None (occurrence: None)
  Receive Date: 20100504
  Receipt Date: 20100420
  Transmission Date: 20101027
  Serious: Yes (Hospitalization)
  Sender: FDA-Public Use
  Company Number: FR-JNJFOC-20090803836

PATIENT
  Sex: Female

DRUGS (14)
  1. IXPRIM [Suspect]
     Indication: DRUG USE FOR UNKNOWN INDICATION
     Route: 048
  2. OFLOCET [Suspect]
     Indication: BACTERAEMIA
     Route: 048
  3. TEMERIT [Suspect]
     Indication: DRUG USE FOR UNKNOWN INDICATION
     Route: 048
  4. LEVOTHYROX [Suspect]
     Indication: DRUG USE FOR UNKNOWN INDICATION
     Route: 048
  5. ATACAND [Suspect]
     Indication: DRUG USE FOR UNKNOWN INDICATION
     Route: 065
  6. RIFADIN [Suspect]
     Indication: BACTERAEMIA
     Route: 048
  7. DIFFU K [Concomitant]
     Route: 065
  8. DIGOXIN [Concomitant]
     Route: 065
  9. PREVISCAN [Concomitant]
     Route: 065
  10. LORAZEPAM [Concomitant]
     Route: 065
  11. ODRIK [Concomitant]
     Route: 065
  12. ALDACTONE [Concomitant]
     Route: 065
  13. CORDARONE [Concomitant]
     Route: 065
  14. CORTICOSTEROIDS [Concomitant]
     Indication: DRUG USE FOR UNKNOWN INDICATION
     Route: 065

REACTIONS (1)
  - ANAEMIA HAEMOLYTIC AUTOIMMUNE [None]
